FAERS Safety Report 7481659-1 (Version None)
Quarter: 2011Q2

REPORT INFORMATION
  Report Type: 
  Country: None (occurrence: None)
  Receive Date: 20110516
  Receipt Date: 20110503
  Transmission Date: 20111010
  Serious: Yes (Other)
  Sender: FDA-Public Use
  Company Number: AU-ELI_LILLY_AND_COMPANY-AU201105000342

PATIENT
  Age: 4 Year

DRUGS (1)
  1. ZYPREXA ZYDIS [Suspect]
     Dosage: 20 MG, QD
     Route: 048

REACTIONS (2)
  - ACCIDENTAL DRUG INTAKE BY CHILD [None]
  - SEDATION [None]
